FAERS Safety Report 10071099 (Version 1)
Quarter: 2014Q2

REPORT INFORMATION
  Report Type: Report from Study
  Country: US (occurrence: US)
  Receive Date: 20140410
  Receipt Date: 20140410
  Transmission Date: 20141212
  Serious: Yes (Hospitalization)
  Sender: FDA-Public Use
  Company Number: US-JNJFOC-20140406715

PATIENT
  Age: 2 Year
  Sex: Female
  Weight: 11.34 kg

DRUGS (1)
  1. NUCYNTA ER [Suspect]
     Indication: ACCIDENTAL EXPOSURE TO PRODUCT
     Route: 048

REACTIONS (1)
  - Accidental exposure to product [Unknown]
